FAERS Safety Report 17151626 (Version 1)
Quarter: 2019Q4

REPORT INFORMATION
  Report Type: Spontaneous
  Country: US (occurrence: US)
  Receive Date: 20191212
  Receipt Date: 20191212
  Transmission Date: 20200122
  Serious: Yes (Other)
  Sender: FDA-Public Use
  Company Number: None

PATIENT
  Age: 10 Year
  Sex: Male
  Weight: 29.25 kg

DRUGS (1)
  1. OSELTAMIVIR PHOSPHATE FOR ORAL SUSPENSION [Suspect]
     Active Substance: OSELTAMIVIR PHOSPHATE
     Indication: INFLUENZA
     Dosage: ?          QUANTITY:10 ML;?
     Route: 048
     Dates: start: 20191212, end: 20191212

REACTIONS (4)
  - Hallucination [None]
  - Nightmare [None]
  - Panic reaction [None]
  - Dyspnoea [None]

NARRATIVE: CASE EVENT DATE: 20191212
